FAERS Safety Report 12732368 (Version 1)
Quarter: 2016Q3

REPORT INFORMATION
  Report Type: Spontaneous
  Country: US (occurrence: US)
  Receive Date: 20160909
  Receipt Date: 20160909
  Transmission Date: 20161109
  Serious: Yes (Disabling)
  Sender: FDA-Public Use
  Company Number: None

PATIENT
  Age: 67 Year
  Sex: Female
  Weight: 67.5 kg

DRUGS (4)
  1. ESTRADIOL. [Concomitant]
     Active Substance: ESTRADIOL
  2. LEVOTHYROXIN [Concomitant]
     Active Substance: LEVOTHYROXINE
  3. PROMETRIUM [Concomitant]
     Active Substance: PROGESTERONE
  4. ZANTAC [Suspect]
     Active Substance: RANITIDINE HYDROCHLORIDE
     Indication: GASTROOESOPHAGEAL REFLUX DISEASE
     Route: 048
     Dates: start: 20160803, end: 20160817

REACTIONS (4)
  - Insomnia [None]
  - Chest pain [None]
  - Feeling abnormal [None]
  - Abdominal distension [None]

NARRATIVE: CASE EVENT DATE: 20160817
